FAERS Safety Report 5863770-1 (Version None)
Quarter: 2008Q3

REPORT INFORMATION
  Report Type: 
  Country: None (occurrence: None)
  Receive Date: 20080828
  Receipt Date: 20080820
  Transmission Date: 20090109
  Serious: Yes (Life-Threatening)
  Sender: FDA-Public Use
  Company Number: JP-BAYER-200811920BYL

PATIENT
  Age: 39 Year
  Sex: Male

DRUGS (1)
  1. AVELOX [Suspect]
     Indication: BRONCHITIS
     Dosage: TOTAL DAILY DOSE: 400 MG  UNIT DOSE: 400 MG
     Route: 048
     Dates: start: 20080820, end: 20080820

REACTIONS (4)
  - ANAPHYLACTIC REACTION [None]
  - COLD SWEAT [None]
  - DRUG ERUPTION [None]
  - OBSTRUCTIVE AIRWAYS DISORDER [None]
